FAERS Safety Report 7533212-9 (Version None)
Quarter: 2011Q2

REPORT INFORMATION
  Report Type: 
  Country: None (occurrence: None)
  Receive Date: 20110608
  Receipt Date: 20030722
  Transmission Date: 20111010
  Serious: Yes (Hospitalization)
  Sender: FDA-Public Use
  Company Number: PHFR2003GB02913

PATIENT
  Sex: Female

DRUGS (1)
  1. CLOZAPINE [Suspect]
     Indication: SCHIZOPHRENIA
     Route: 048
     Dates: start: 19950117, end: 20030714

REACTIONS (6)
  - SEPSIS [None]
  - HEAD INJURY [None]
  - CONVULSION [None]
  - FULL BLOOD COUNT ABNORMAL [None]
  - DEHYDRATION [None]
  - LOSS OF CONSCIOUSNESS [None]
